FAERS Safety Report 17388608 (Version 2)
Quarter: 2022Q2

REPORT INFORMATION
  Report Type: Spontaneous
  Country: US (occurrence: US)
  Receive Date: 20200207
  Receipt Date: 20220627
  Transmission Date: 20220721
  Serious: No
  Sender: FDA-Public Use
  Company Number: US-PFIZER INC-2020053062

PATIENT
  Age: 34 Year
  Sex: Female

DRUGS (3)
  1. XELJANZ XR [Suspect]
     Active Substance: TOFACITINIB CITRATE
     Indication: Rheumatoid arthritis
     Dosage: 11 MG, DAILY (TAKE 1 TABLET BY MOUTH ONCE DAILY)
     Route: 048
  2. FERROUS SULFATE [Concomitant]
     Active Substance: FERROUS SULFATE
  3. CHOLECALCIFEROL [Concomitant]
     Active Substance: CHOLECALCIFEROL

REACTIONS (2)
  - Influenza [Unknown]
  - Product dose omission issue [Unknown]
